FAERS Safety Report 16417000 (Version 2)
Quarter: 2019Q2

REPORT INFORMATION
  Report Type: Spontaneous
  Country: JP (occurrence: JP)
  Receive Date: 20190611
  Receipt Date: 20190614
  Transmission Date: 20190711
  Serious: Yes (Other)
  Sender: FDA-Public Use
  Company Number: JP-PFIZER INC-2019248187

PATIENT
  Age: 15 Year
  Sex: Female
  Weight: 44.5 kg

DRUGS (13)
  1. PRODIF [Concomitant]
     Active Substance: FOSFLUCONAZOLE
     Dosage: UNK
     Route: 065
  2. SODIUM PHOSPHATE [Concomitant]
     Active Substance: SODIUM PHOSPHATE
     Dosage: UNK
     Route: 065
  3. THYRADIN S [Concomitant]
     Active Substance: LEVOTHYROXINE SODIUM
     Dosage: UNK
     Route: 065
  4. INTRALIPOS [Concomitant]
     Active Substance: SOYBEAN OIL
     Dosage: UNK
     Route: 065
  5. TEICOPLANIN [Concomitant]
     Active Substance: TEICOPLANIN
     Dosage: UNK
     Route: 065
     Dates: start: 20190416
  6. FULCALIQ [Concomitant]
     Active Substance: AMINO ACIDS\CARBOHYDRATES\ELECTROLYTES NOS\VITAMINS
     Dosage: UNK
     Route: 065
  7. TEGRETOL [Concomitant]
     Active Substance: CARBAMAZEPINE
     Indication: EPILEPSY
     Dosage: 400 MG, DAILY
  8. FOSTOIN [Suspect]
     Active Substance: FOSPHENYTOIN SODIUM
     Indication: EPILEPSY
     Dosage: 150 MG, 2X/DAY (12 HR)
     Route: 041
     Dates: start: 20190316, end: 20190418
  9. MINERIC 5 [Concomitant]
     Dosage: UNK
     Route: 065
  10. E KEPPRA [Concomitant]
     Active Substance: LEVETIRACETAM
     Indication: EPILEPSY
     Dosage: 2000 MG, 1X/DAY
     Route: 065
  11. VIMPAT [Concomitant]
     Active Substance: LACOSAMIDE
     Indication: EPILEPSY
     Dosage: 200 MG, 1X/DAY
     Route: 065
  12. TOPINA [Concomitant]
     Active Substance: TOPIRAMATE
     Indication: EPILEPSY
     Dosage: 400 MG, DAILY
  13. GASTER [CROMOGLICATE SODIUM] [Concomitant]
     Dosage: UNK
     Route: 065

REACTIONS (6)
  - Pruritus [Recovered/Resolved]
  - Pyrexia [Recovered/Resolved]
  - Viral infection [Unknown]
  - Rash generalised [Recovered/Resolved]
  - Erythema [Recovered/Resolved]
  - Bacterial infection [Unknown]

NARRATIVE: CASE EVENT DATE: 20190415
